FAERS Safety Report 21711719 (Version 1)
Quarter: 2022Q4

REPORT INFORMATION
  Report Type: Spontaneous
  Country: US (occurrence: US)
  Receive Date: 20221212
  Receipt Date: 20221212
  Transmission Date: 20230113
  Serious: Yes (Hospitalization)
  Sender: FDA-Public Use
  Company Number: US-SA-2022SA497619

PATIENT
  Age: 37 Year
  Sex: Female

DRUGS (2)
  1. FABRAZYME [Suspect]
     Active Substance: AGALSIDASE BETA
     Indication: Fabry^s disease
     Dosage: 140 MG, QOW (STRENGTH: 35MG  DOSE OR AMOUNT: 140 MG, STRENGTH: 5MG DOSE OR AMOUNT: 10 MG)
     Route: 042
     Dates: start: 201908
  2. LASIX [Concomitant]
     Active Substance: FUROSEMIDE
     Dosage: UNK

REACTIONS (2)
  - Blood potassium decreased [Unknown]
  - Weight increased [Unknown]
